FAERS Safety Report 8126399 (Version 4)
Quarter: 2013Q2

REPORT INFORMATION
  Report Type: Report from Study
  Country: JP (occurrence: JP)
  Receive Date: 20110908
  Receipt Date: 20130620
  Transmission Date: 20140414
  Serious: Yes (Other)
  Sender: FDA-Public Use
  Company Number: JP-ROCHE-800157

PATIENT
  Age: 58 Year
  Sex: Male

DRUGS (27)
  1. PEG-INTERFERON ALFA 2A [Suspect]
     Indication: CHRONIC HEPATITIS C
     Dosage: DOSAGE IS UNCERTAIN.
     Route: 058
     Dates: start: 20091224, end: 20100210
  2. PEG-INTERFERON ALFA 2A [Suspect]
     Indication: CHRONIC HEPATITIS C
     Route: 058
     Dates: start: 20100428, end: 20100811
  3. PEG-INTERFERON ALFA 2A [Suspect]
     Indication: CHRONIC HEPATITIS C
     Route: 058
     Dates: start: 20100818, end: 20100818
  4. PEG-INTERFERON ALFA 2A [Suspect]
     Indication: CHRONIC HEPATITIS C
     Route: 058
     Dates: start: 20100825, end: 20100901
  5. PEG-INTERFERON ALFA 2A [Suspect]
     Indication: CHRONIC HEPATITIS C
     Route: 058
     Dates: start: 20100908, end: 20100929
  6. PEG-INTERFERON ALFA 2A [Suspect]
     Indication: CHRONIC HEPATITIS C
     Route: 058
     Dates: start: 20101006, end: 20101006
  7. PEG-INTERFERON ALFA 2A [Suspect]
     Indication: CHRONIC HEPATITIS C
     Route: 058
     Dates: start: 20101014, end: 20101117
  8. PEG-INTERFERON ALFA 2A [Suspect]
     Indication: CHRONIC HEPATITIS C
     Route: 058
     Dates: start: 20101124, end: 20111229
  9. PEG-INTERFERON ALFA 2A [Suspect]
     Indication: CHRONIC HEPATITIS C
     Route: 058
     Dates: start: 20110105, end: 20110119
  10. PEG-INTERFERON ALFA 2A [Suspect]
     Indication: CHRONIC HEPATITIS C
     Route: 058
     Dates: start: 20110126, end: 20110302
  11. PEG-INTERFERON ALFA 2A [Suspect]
     Indication: CHRONIC HEPATITIS C
     Route: 058
     Dates: start: 20110309, end: 20110309
  12. PEG-INTERFERON ALFA 2A [Suspect]
     Indication: CHRONIC HEPATITIS C
     Route: 058
     Dates: start: 20110316, end: 20110907
  13. PEG-INTERFERON ALFA 2A [Suspect]
     Indication: CHRONIC HEPATITIS C
     Route: 058
     Dates: start: 20110921, end: 20111228
  14. RIBAVIRIN [Suspect]
     Indication: CHRONIC HEPATITIS C
     Dosage: DOSAGE IS UNCERTAIN.
     Route: 048
     Dates: start: 20091224, end: 20100210
  15. RIBAVIRIN [Suspect]
     Indication: CHRONIC HEPATITIS C
     Route: 048
     Dates: start: 20100428, end: 20110913
  16. TEPRENONE [Concomitant]
     Indication: GASTRITIS
     Route: 048
  17. TEPRENONE [Concomitant]
     Indication: PROPHYLAXIS
     Route: 048
  18. FAMOTIDINE [Concomitant]
     Indication: GASTRITIS
     Route: 048
  19. FAMOTIDINE [Concomitant]
     Indication: PROPHYLAXIS
     Route: 048
  20. BLOPRESS [Concomitant]
     Indication: HYPERTENSION
     Route: 048
  21. BLOPRESS [Concomitant]
     Route: 048
  22. URSO [Concomitant]
     Indication: CHRONIC HEPATITIS C
     Route: 048
  23. URSO [Concomitant]
     Route: 048
  24. LOXONIN [Concomitant]
     Indication: PROPHYLAXIS
     Dosage: A DOSE
     Route: 048
     Dates: start: 20100430, end: 20101116
  25. MUCOSTA OPHTHALMIC SUSPENSION [Concomitant]
     Indication: PROPHYLAXIS
     Dosage: A DOSE
     Route: 048
     Dates: start: 20100506
  26. AMLODIN [Concomitant]
     Indication: HYPERTENSION
     Route: 048
  27. SHAKUYAKUKANZOTO [Concomitant]
     Route: 048

REACTIONS (4)
  - Neutrophil count decreased [Not Recovered/Not Resolved]
  - Haemoglobin decreased [Not Recovered/Not Resolved]
  - Platelet count decreased [Recovering/Resolving]
  - Pyrexia [Recovering/Resolving]
